FAERS Safety Report 4664834-0 (Version None)
Quarter: 2005Q2

REPORT INFORMATION
  Report Type: 
  Country: None (occurrence: None)
  Receive Date: 20050517
  Receipt Date: 20050517
  Transmission Date: 20051028
  Serious: Yes (Hospitalization)
  Sender: FDA-Public Use
  Company Number: None

PATIENT
  Age: 62 Year
  Sex: Male
  Weight: 114 kg

DRUGS (2)
  1. ATIVAN [Suspect]
     Indication: MUSCLE SPASMS
     Dosage: 1 MG IV X 2
     Route: 042
     Dates: start: 20050105
  2. DILAUDID [Suspect]
     Indication: MUSCLE SPASMS
     Dosage: 0.5MG IV X 1
     Route: 042
     Dates: start: 20050105

REACTIONS (2)
  - BACTERIAL SEPSIS [None]
  - SOMNOLENCE [None]
